FAERS Safety Report 7470441-7 (Version None)
Quarter: 2011Q2

REPORT INFORMATION
  Report Type: 
  Country: None (occurrence: None)
  Receive Date: 20110510
  Receipt Date: 20110329
  Transmission Date: 20111010
  Serious: Yes (Hospitalization, Other)
  Sender: FDA-Public Use
  Company Number: US-BAYER-201029302NA

PATIENT
  Age: 27 Year
  Sex: Female
  Weight: 70 kg

DRUGS (8)
  1. YAZ [Suspect]
     Indication: CONTRACEPTION
     Dosage: UNK
     Route: 048
     Dates: start: 20080703, end: 20090930
  2. YASMIN [Suspect]
     Dosage: UNK
     Dates: start: 20070122, end: 20080702
  3. ORTHO TRI-CYCLEN LO [Concomitant]
     Indication: CONTRACEPTION
     Dosage: UNK
     Dates: start: 20091001
  4. YASMIN [Suspect]
     Indication: CONTRACEPTION
     Dosage: UNK
     Dates: start: 20050824, end: 20060601
  5. YAZ [Suspect]
     Indication: AMENORRHOEA
  6. PROTONIX [Concomitant]
     Indication: PEPTIC ULCER
     Dosage: 40 MG, BID
  7. METFORMIN HCL [Concomitant]
     Indication: ACNE
     Dosage: UNK
     Dates: start: 20070501
  8. DIURETICS [Concomitant]
     Dosage: UNK
     Dates: start: 20070501

REACTIONS (3)
  - GALLBLADDER DISORDER [None]
  - CHOLELITHIASIS [None]
  - CHOLECYSTITIS CHRONIC [None]
